FAERS Safety Report 19839473 (Version 3)
Quarter: 2021Q4

REPORT INFORMATION
  Report Type: Spontaneous
  Country: JP (occurrence: JP)
  Receive Date: 20210915
  Receipt Date: 20211118
  Transmission Date: 20220304
  Serious: Yes (Hospitalization, Other)
  Sender: FDA-Public Use
  Company Number: JP-OTSUKA-2021_031380

PATIENT
  Age: 50 Year
  Sex: Male

DRUGS (20)
  1. REXULTI [Suspect]
     Active Substance: BREXPIPRAZOLE
     Indication: Schizophrenia
     Dosage: 2 MG, QD
     Route: 048
     Dates: start: 20181003, end: 20210907
  2. ABILIFY [Suspect]
     Active Substance: ARIPIPRAZOLE
     Indication: Schizophrenia
     Dosage: 24MG/DAY, UNK
     Route: 048
     Dates: start: 20181212, end: 20210907
  3. ABILIFY [Suspect]
     Active Substance: ARIPIPRAZOLE
     Dosage: 24/DAY, UNK
     Route: 048
     Dates: start: 20170203, end: 20170819
  4. ABILIFY [Suspect]
     Active Substance: ARIPIPRAZOLE
     Dosage: 12, UNK
     Route: 048
     Dates: start: 20180213
  5. ABILIFY [Suspect]
     Active Substance: ARIPIPRAZOLE
     Dosage: 24, UNK
     Route: 048
     Dates: start: 20180227
  6. ABILIFY [Suspect]
     Active Substance: ARIPIPRAZOLE
     Dosage: 30, UNK
     Route: 048
     Dates: start: 20180327
  7. ABILIFY [Suspect]
     Active Substance: ARIPIPRAZOLE
     Dosage: 24, UNK
     Route: 048
     Dates: start: 20180626
  8. ABILIFY [Suspect]
     Active Substance: ARIPIPRAZOLE
     Dosage: 18, UNK
     Route: 048
     Dates: start: 20180710
  9. ABILIFY [Suspect]
     Active Substance: ARIPIPRAZOLE
     Dosage: 12, UNK
     Route: 048
     Dates: start: 20180726
  10. ABILIFY [Suspect]
     Active Substance: ARIPIPRAZOLE
     Dosage: 6, UNK
     Route: 048
     Dates: start: 20180808
  11. HERBALS [Suspect]
     Active Substance: HERBALS
     Indication: Product used for unknown indication
     Dosage: 378MG/DAY, UNK
     Route: 048
     Dates: start: 20141219
  12. NAFTOPIDIL [Suspect]
     Active Substance: NAFTOPIDIL
     Indication: Product used for unknown indication
     Dosage: 75 MG, QD
     Route: 048
     Dates: start: 20210427
  13. OLANZAPINE [Concomitant]
     Active Substance: OLANZAPINE
     Indication: Product used for unknown indication
     Dosage: UNK
     Route: 065
     Dates: start: 20181212
  14. OLANZAPINE [Concomitant]
     Active Substance: OLANZAPINE
     Dosage: 10, UNK
     Route: 065
     Dates: start: 20180626
  15. OLANZAPINE [Concomitant]
     Active Substance: OLANZAPINE
     Dosage: 20, UNK
     Route: 065
     Dates: start: 20180710
  16. OLANZAPINE [Concomitant]
     Active Substance: OLANZAPINE
     Dosage: 20, UNK
     Route: 065
     Dates: start: 20180726
  17. OLANZAPINE [Concomitant]
     Active Substance: OLANZAPINE
     Dosage: 20, UNK
     Route: 065
     Dates: start: 20180808
  18. OLANZAPINE [Concomitant]
     Active Substance: OLANZAPINE
     Dosage: 20, UNK
     Route: 065
     Dates: start: 20180820
  19. OLANZAPINE [Concomitant]
     Active Substance: OLANZAPINE
     Dosage: 20, UNK
     Route: 065
     Dates: start: 20181003
  20. OLANZAPINE [Concomitant]
     Active Substance: OLANZAPINE
     Dosage: 10, UNK
     Route: 065
     Dates: start: 20181010

REACTIONS (4)
  - Delusion [Recovering/Resolving]
  - Hallucination [Recovering/Resolving]
  - Agitation [Recovering/Resolving]
  - Treatment noncompliance [Unknown]

NARRATIVE: CASE EVENT DATE: 20210905
